FAERS Safety Report 7278812-9 (Version None)
Quarter: 2010Q4

REPORT INFORMATION
  Report Type: 
  Country: None (occurrence: None)
  Receive Date: 20101201
  Receipt Date: 20100421
  Transmission Date: 20110411
  Serious: Yes (Other)
  Sender: FDA-Public Use
  Company Number: 10-000604

PATIENT
  Age: 60 Year
  Sex: Female
  Weight: 72.1 kg

DRUGS (6)
  1. FEMHRT [Suspect]
     Indication: MENOPAUSE
     Dosage: 1 TABLET EVERY 5 DAYS, ORAL, 1 TABLET EVERY THREE DAYS, ORAL
     Route: 048
     Dates: start: 19970101
  2. FEMHRT [Suspect]
     Indication: MENOPAUSE
     Dosage: 1 TABLET EVERY 5 DAYS, ORAL, 1 TABLET EVERY THREE DAYS, ORAL
     Route: 048
     Dates: start: 20100101
  3. AMLODIPINE [Concomitant]
  4. ALPRAZOLAM [Concomitant]
  5. NATURE BOUNTY HAIR, SKIN AND NAILS [Concomitant]
  6. HYDROCORTISONE (HYDROCORTISONE HYDROGEN SUCCINATE) [Concomitant]

REACTIONS (8)
  - ABDOMINAL DISTENSION [None]
  - ABDOMINAL PAIN [None]
  - CEREBROVASCULAR ACCIDENT [None]
  - DYSPNOEA [None]
  - HEADACHE [None]
  - METRORRHAGIA [None]
  - NAUSEA [None]
  - VISUAL ACUITY REDUCED [None]
